FAERS Safety Report 5727372-X (Version None)
Quarter: 2008Q2

REPORT INFORMATION
  Report Type: 
  Country: None (occurrence: None)
  Receive Date: 20080505
  Receipt Date: 20080505
  Transmission Date: 20081010
  Serious: Yes (Death)
  Sender: FDA-Public Use
  Company Number: None

PATIENT
  Age: 67 Year
  Sex: Male
  Weight: 77.1115 kg

DRUGS (6)
  1. HEPARIN [Suspect]
     Indication: PREOPERATIVE CARE
     Dosage: 5,000 UNIT/1ML TWICE A DAY SQ
     Route: 058
     Dates: start: 20071226, end: 20071229
  2. ALBUTEROL SULFATE [Concomitant]
  3. METOCLOPRAMIDE HCL [Concomitant]
  4. ENALAPRIL MALEATE [Concomitant]
  5. MORPHINE SULFATE [Concomitant]
  6. PANTOPRAZOLE SODIUM [Concomitant]

REACTIONS (1)
  - DIZZINESS [None]
